FAERS Safety Report 19565016 (Version 1)
Quarter: 2021Q3

REPORT INFORMATION
  Report Type: Spontaneous
  Country: CN (occurrence: CN)
  Receive Date: 20210716
  Receipt Date: 20210716
  Transmission Date: 20211014
  Serious: Yes (Hospitalization, Other)
  Sender: FDA-Public Use
  Company Number: CN-PFIZER INC-2021822962

PATIENT
  Age: 63 Year
  Sex: Female
  Weight: 53 kg

DRUGS (4)
  1. PHARMORUBICIN [Suspect]
     Active Substance: EPIRUBICIN
     Indication: LYMPHADENOPATHY
     Dosage: 60 MG, 1X/DAY
     Route: 041
     Dates: start: 20210611, end: 20210611
  2. BLEOMYCIN HYDROCHLORIDE [Suspect]
     Active Substance: BLEOMYCIN HYDROCHLORIDE
     Indication: LYMPHADENOPATHY
     Dosage: 15000 IU, 1X/DAY
     Route: 042
     Dates: start: 20210611, end: 20210611
  3. VINDESINE SULFATE [Suspect]
     Active Substance: VINDESINE SULFATE
     Indication: LYMPHADENOPATHY
     Dosage: 4 MG, 1X/DAY
     Route: 042
     Dates: start: 20210611, end: 20210611
  4. DACARBAZINE. [Suspect]
     Active Substance: DACARBAZINE
     Indication: LYMPHADENOPATHY
     Dosage: 600 MG, 1X/DAY
     Route: 041
     Dates: start: 20210611, end: 20210611

REACTIONS (1)
  - Myelosuppression [Recovered/Resolved]

NARRATIVE: CASE EVENT DATE: 20210623
